FAERS Safety Report 16494816 (Version 1)
Quarter: 2019Q2

REPORT INFORMATION
  Report Type: Spontaneous
  Country: ES (occurrence: ES)
  Receive Date: 20190628
  Receipt Date: 20190628
  Transmission Date: 20190711
  Serious: Yes (Other)
  Sender: FDA-Public Use
  Company Number: ES-TEVA-2019-ES-1070804

PATIENT
  Age: 85 Year
  Sex: Male

DRUGS (1)
  1. KENTERA 3,9 MG/24 HORAS, PARCHE TRANSDERMICO, 8 PARCHES [Suspect]
     Active Substance: OXYBUTYNIN
     Indication: NEUROGENIC BLADDER
     Dosage: A PATCH EVERY THREE DAYS
     Route: 062
     Dates: start: 20180131, end: 20180204

REACTIONS (5)
  - Disorientation [Recovering/Resolving]
  - Hallucination [Recovering/Resolving]
  - Restlessness [Recovering/Resolving]
  - Agitation [Recovering/Resolving]
  - Somnolence [Recovering/Resolving]

NARRATIVE: CASE EVENT DATE: 20180204
